FAERS Safety Report 9185680 (Version 2)
Quarter: 2013Q4

REPORT INFORMATION
  Report Type: Spontaneous
  Country: GB (occurrence: GB)
  Receive Date: 20130325
  Receipt Date: 20131017
  Transmission Date: 20140711
  Serious: Yes (Other)
  Sender: FDA-Public Use
  Company Number: GB-TEVA-391924ISR

PATIENT
  Age: 79 Year
  Sex: Male

DRUGS (9)
  1. TRIMETHOPRIM [Suspect]
     Indication: URINARY TRACT INFECTION
     Dosage: 600 MILLIGRAM DAILY;
     Dates: start: 20130204, end: 20130215
  2. MADOPAR [Interacting]
     Indication: PARKINSON^S DISEASE
     Dosage: LEVODOPA-200MG/BENSERAZIDE-50MG
     Route: 048
  3. MADOPAR [Interacting]
     Dosage: LEVODOPA-100MG/BENSERAZIDE-25MG
     Route: 048
     Dates: start: 20130201
  4. LANSOPRAZOLE [Concomitant]
     Indication: GASTRITIS EROSIVE
  5. CO-AMILOFRUSE [Concomitant]
     Indication: DIURETIC THERAPY
  6. ROTIGOTINE [Concomitant]
     Indication: PARKINSON^S DISEASE
     Dosage: 6 MILLIGRAM DAILY;
     Route: 061
     Dates: start: 20130201
  7. ROTIGOTINE [Concomitant]
     Dosage: 8 MILLIGRAM DAILY;
     Route: 061
     Dates: start: 20130307
  8. ROTIGOTINE [Concomitant]
     Dosage: 10 MILLIGRAM DAILY;
     Route: 061
     Dates: start: 20130402
  9. LEVOTHYROXINE [Concomitant]
     Indication: THYROID DISORDER
     Route: 048

REACTIONS (2)
  - Hallucination [Recovered/Resolved]
  - Drug interaction [Recovered/Resolved]
